FAERS Safety Report 4353799-7 (Version None)
Quarter: 2004Q2

REPORT INFORMATION
  Report Type: 
  Country: None (occurrence: None)
  Receive Date: 20040429
  Receipt Date: 20030425
  Transmission Date: 20050107
  Serious: Yes (Other)
  Sender: FDA-Public Use
  Company Number: 1672257A

PATIENT
  Age: 71 Year
  Sex: Female

DRUGS (7)
  1. IMODIUM A-D [Suspect]
     Indication: DIARRHOEA
     Dosage: 4 MG, QD, PO
     Route: 048
     Dates: start: 20030422
  2. CELEXA [Concomitant]
  3. FOSAMAX [Concomitant]
  4. LEVOXYL [Concomitant]
  5. ZOCOR [Concomitant]
  6. OXYBUTYNIN [Concomitant]
  7. LISINOPRIL [Concomitant]

REACTIONS (1)
  - CONSTIPATION [None]
